FAERS Safety Report 21254704 (Version 2)
Quarter: 2022Q3

REPORT INFORMATION
  Report Type: Spontaneous
  Country: GR (occurrence: GR)
  Receive Date: 20220825
  Receipt Date: 20220906
  Transmission Date: 20221027
  Serious: Yes (Other)
  Sender: FDA-Public Use
  Company Number: GR-TEVA-2022-GR-2066940

PATIENT
  Sex: Male

DRUGS (22)
  1. IRINOTECAN [Suspect]
     Active Substance: IRINOTECAN
     Indication: Glioblastoma multiforme
     Dosage: DILUTED IN GLUCOSE; GIVEN OVER 60MIN ON DAYS 1-5; RECYCLED EVERY 21 DAYS
     Route: 042
     Dates: start: 2019
  2. IRINOTECAN [Suspect]
     Active Substance: IRINOTECAN
     Dosage: DILUTED IN GLUCOSE; GIVEN OVER 60MIN ON DAYS 1-5; RECYCLED EVERY 21 DAYS
     Route: 042
     Dates: start: 2019
  3. TEMOZOLOMIDE [Suspect]
     Active Substance: TEMOZOLOMIDE
     Indication: Glioblastoma multiforme
     Dosage: 75 MG/M2 DAILY;
     Route: 065
  4. TEMOZOLOMIDE [Suspect]
     Active Substance: TEMOZOLOMIDE
     Dosage: 150 MG/M2 DAILY; MONTHLY; FOR 5 DAYS; RECYCLED EVERY 28 DAYS; OVER 6 MONTHS
     Route: 065
  5. TEMOZOLOMIDE [Suspect]
     Active Substance: TEMOZOLOMIDE
     Dosage: 150 MG/M2 DAILY; MONTHLY; FOR 5 DAYS; RECYCLED EVERY 28 DAYS
     Route: 065
     Dates: end: 201803
  6. TEMOZOLOMIDE [Suspect]
     Active Substance: TEMOZOLOMIDE
     Dosage: FOR 5 DAYS; RECYCLED EVERY 28 DAYS
     Route: 065
     Dates: end: 201809
  7. TEMOZOLOMIDE [Suspect]
     Active Substance: TEMOZOLOMIDE
     Dosage: RECYCLED EVERY 21 DAYS
     Route: 048
     Dates: start: 2019
  8. DEXAMETHASONE [Suspect]
     Active Substance: DEXAMETHASONE
     Indication: Epilepsy
     Dosage: 12 MILLIGRAM DAILY;
     Route: 048
     Dates: start: 2019
  9. BEVACIZUMAB [Concomitant]
     Active Substance: BEVACIZUMAB
     Indication: Glioblastoma multiforme
     Dosage: 15 MG/KG DAILY; ON DAY 1; RECYCLED EVERY 21 DAYS
     Route: 065
     Dates: start: 2019
  10. VINCRISTINE [Concomitant]
     Active Substance: VINCRISTINE
     Indication: Glioblastoma multiforme
     Dosage: ON DAY 1; DILUTED IN SODIUM CHLORIDE; INFUSED OVER 10 MINUTES ON DAY 1; RECYCLED EVERY 21 DAYS
     Route: 041
     Dates: start: 2019
  11. SODIUM CHLORIDE [Concomitant]
     Active Substance: SODIUM CHLORIDE
     Indication: Product used for unknown indication
     Dosage: INFUSED OVER 10 MINUTES; RECYCLED EVERY 21 DAYS
     Route: 041
     Dates: start: 2019
  12. DEXTROSE [Concomitant]
     Active Substance: DEXTROSE
     Indication: Product used for unknown indication
     Dosage: GIVEN OVER 60 MINUTES; ON DAYS 1-5; RECYCLED EVERY 21 DAYS
     Route: 042
     Dates: start: 2019
  13. CEFIXIME [Concomitant]
     Active Substance: CEFIXIME
     Indication: Antibiotic prophylaxis
     Dosage: 400 MILLIGRAM DAILY; BETWEEN DAYS -2 AND +10 OF EACH COURSE
     Route: 048
     Dates: start: 2019
  14. CEFIXIME [Concomitant]
     Active Substance: CEFIXIME
     Indication: Colitis
  15. CEFIXIME [Concomitant]
     Active Substance: CEFIXIME
     Indication: Diarrhoea
  16. DIMETHINDENE MALEATE [Concomitant]
     Active Substance: DIMETHINDENE MALEATE
     Indication: Antibiotic prophylaxis
     Dosage: 2 MILLIGRAM DAILY; DELIVERED OVER 90MIN DURING THE FIRST INFUSION IN CYCLE 1, AND OVER 30MIN IN ALL
     Route: 042
     Dates: start: 2019
  17. DIMETHINDENE MALEATE [Concomitant]
     Active Substance: DIMETHINDENE MALEATE
     Indication: Colitis
  18. DIMETHINDENE MALEATE [Concomitant]
     Active Substance: DIMETHINDENE MALEATE
     Indication: Diarrhoea
  19. PALONOSETRON [Concomitant]
     Active Substance: PALONOSETRON
     Indication: Prophylaxis of nausea and vomiting
     Dosage: ON DAYS 1, 3, AND 5
     Route: 048
     Dates: start: 2019
  20. APREPITANT [Concomitant]
     Active Substance: APREPITANT
     Indication: Prophylaxis of nausea and vomiting
     Dosage: 125 MILLIGRAM DAILY; ON DAY 1
     Route: 065
     Dates: start: 2019
  21. APREPITANT [Concomitant]
     Active Substance: APREPITANT
     Dosage: 80 MILLIGRAM DAILY; ON DAYS 2-5
     Route: 065
     Dates: start: 2019
  22. SULFAMETHOXAZOLE\TRIMETHOPRIM [Concomitant]
     Active Substance: SULFAMETHOXAZOLE\TRIMETHOPRIM
     Indication: Prophylaxis
     Dosage: STRENGTH: 160/320 MG; ON MONDAY-WEDNESDAY-FRIDAY
     Route: 048
     Dates: start: 2019

REACTIONS (3)
  - Diarrhoea [Recovered/Resolved]
  - Colitis [Unknown]
  - Hepatotoxicity [Recovering/Resolving]

NARRATIVE: CASE EVENT DATE: 20190101
